FAERS Safety Report 8906802 (Version 2)
Quarter: 2012Q4

REPORT INFORMATION
  Report Type: Report from Study
  Country: US (occurrence: US)
  Receive Date: 20121114
  Receipt Date: 20121129
  Transmission Date: 20130627
  Serious: Yes (Hospitalization, Other)
  Sender: FDA-Public Use
  Company Number: US-SANOFI-AVENTIS-2012SA078442

PATIENT
  Age: 55 Year
  Sex: Male

DRUGS (30)
  1. DOCETAXEL [Suspect]
     Indication: SQUAMOUS CELL CARCINOMA OF HEAD AND NECK
     Route: 065
  2. DOCETAXEL [Suspect]
     Indication: SQUAMOUS CELL CARCINOMA OF HEAD AND NECK
     Dosage: daily dose: 75 mg/m2
     Route: 065
     Dates: start: 20121009
  3. CISPLATIN [Suspect]
     Indication: SQUAMOUS CELL CARCINOMA OF HEAD AND NECK
     Route: 065
  4. CISPLATIN [Suspect]
     Indication: SQUAMOUS CELL CARCINOMA OF HEAD AND NECK
     Dosage: daily dose: 75 mg/m2
     Route: 065
     Dates: start: 20121009
  5. BLINDED THERAPY [Suspect]
     Indication: SQUAMOUS CELL CARCINOMA OF HEAD AND NECK
     Route: 048
     Dates: start: 20121030
  6. BLINDED THERAPY [Suspect]
     Indication: SQUAMOUS CELL CARCINOMA OF HEAD AND NECK
     Route: 048
     Dates: start: 20120918, end: 20121017
  7. CARBOPLATIN [Suspect]
     Indication: SQUAMOUS CELL CARCINOMA OF HEAD AND NECK
     Route: 065
  8. AMLODIPINE [Concomitant]
     Dosage: strength: 10 mg; every morning 1 tab
     Route: 048
  9. VITAMIN D3 [Concomitant]
     Route: 048
  10. ESCITALOPRAM [Concomitant]
     Dosage: strength: 10 mg; 1 tab every morning; home-medication
     Route: 048
  11. FOSINOPRIL [Concomitant]
     Dosage: strength: 40 mg; 1 tab every morning; home medication
     Route: 048
  12. FOSINOPRIL [Concomitant]
     Dosage: every morning; strength:10 mg; hospital medication
     Route: 048
  13. HYDROCHLOROTHIAZIDE [Concomitant]
     Dosage: 1 tab every morning; strength: 12.5 mg
     Route: 048
  14. MULTIVITAMIN AND MINERAL SUPPLEMENT [Concomitant]
     Route: 048
  15. ONDANSETRON [Concomitant]
     Indication: NAUSEA
     Dosage: rapid dissolve tablet; every 6 hours as needed; continued as home-med
     Route: 048
  16. ONDANSETRON [Concomitant]
     Indication: VOMITING
     Dosage: rapid dissolve tablet; every 6 hours as needed; continued as home-med
     Route: 048
  17. ONDANSETRON [Concomitant]
     Indication: NAUSEA
     Dosage: rapid dissolve tablet; every 6 hours as needed; changed as hospital medication
     Route: 060
  18. ONDANSETRON [Concomitant]
     Indication: VOMITING
     Dosage: rapid dissolve tablet; every 6 hours as needed; changed as hospital medication
     Route: 060
  19. ACETAMINOPHEN [Concomitant]
     Indication: HEADACHE
     Dosage: 2 tablet every 4 hours as needed; strength: 325 mg
     Route: 048
  20. ACETAMINOPHEN [Concomitant]
     Indication: PAIN
     Dosage: 2 tablet every 4 hours as needed; strength: 325 mg
     Route: 048
  21. ACETAMINOPHEN [Concomitant]
     Indication: FEVER
     Dosage: 2 tablet every 4 hours as needed; strength: 325 mg
     Route: 048
  22. AMLODIPINE BESILATE [Concomitant]
     Dosage: every morning; strength: 5 mg
     Route: 048
  23. LEXAPRO [Concomitant]
     Dosage: every morning; strength: 10 mg
     Route: 048
  24. LIDOCAINE [Concomitant]
     Dosage: IV 50 mg/5 ml (1%) Syringe 0.1 ml intradermal IV insertion
  25. ONDANSETRON HYDROCHLORIDE [Concomitant]
     Indication: NAUSEA
     Dosage: strength: 4mg/2 ml solution; every 6 hours as needed
     Route: 042
  26. ONDANSETRON HYDROCHLORIDE [Concomitant]
     Indication: VOMITING
     Dosage: strength: 4mg/2 ml solution; every 6 hours as needed
     Route: 042
  27. PROMETHAZINE [Concomitant]
     Dosage: strength: 25 mg/ml; solution; every 4 hours as needed for nausea or vomiting
     Route: 042
  28. ZALEPLON [Concomitant]
     Indication: INSOMNIA
     Dosage: strength: 5 mg; 1 capsule daily at bedtime as needed
     Route: 048
  29. SODIUM CHLORIDE [Concomitant]
     Dosage: strength: 0.9% 3 ml; clinical direction: to flush hep-lock Q shift or after drug administration
     Route: 042
  30. ASPIRIN [Concomitant]

REACTIONS (6)
  - Gastritis erosive [Unknown]
  - Duodenitis [Unknown]
  - Blood urea increased [Unknown]
  - Anaemia [Recovering/Resolving]
  - Duodenal ulcer [Recovering/Resolving]
  - Upper gastrointestinal haemorrhage [Recovered/Resolved]
